FAERS Safety Report 25310537 (Version 2)
Quarter: 2025Q2

REPORT INFORMATION
  Report Type: Spontaneous
  Country: RU (occurrence: RU)
  Receive Date: 20250514
  Receipt Date: 20250624
  Transmission Date: 20250717
  Serious: Yes (Other)
  Sender: SANOFI AVENTIS
  Company Number: RU-SA-2025SA135079

PATIENT
  Age: 72 Year
  Sex: Female
  Weight: 64 kg

DRUGS (14)
  1. ENOXAPARIN SODIUM [Suspect]
     Active Substance: ENOXAPARIN SODIUM
     Indication: Device related thrombosis
     Dosage: 60 MG, QOD
     Route: 058
     Dates: start: 20250428, end: 20250506
  2. CEFTRIAXONE [Suspect]
     Active Substance: CEFTRIAXONE
     Indication: Device related infection
     Dosage: 2 G, QD
     Route: 041
     Dates: start: 20250428, end: 20250503
  3. VANCOMYCIN [Suspect]
     Active Substance: VANCOMYCIN
     Indication: Device related infection
     Dosage: 1 G, QD
     Route: 041
     Dates: start: 20250428, end: 20250505
  4. GADOTERATE MEGLUMINE [Suspect]
     Active Substance: GADOTERATE MEGLUMINE
     Indication: Contrast-enhanced magnetic resonance venography
     Dosage: 12 ML, QD(0.2ML/KG)
     Route: 041
     Dates: start: 20250430, end: 20250430
  5. KETOPROFEN [Concomitant]
     Active Substance: KETOPROFEN
     Indication: Pyrexia
     Dosage: 100 MG, QD
     Route: 030
     Dates: start: 20250428, end: 20250429
  6. BIFIDOBACTERIUM BIFIDUM [Concomitant]
     Active Substance: BIFIDOBACTERIUM BIFIDUM
     Indication: Diarrhoea
     Dosage: 5 DF, QD (5CFU/ML)
     Route: 048
     Dates: start: 20250430, end: 20250505
  7. DEXAMETHASONE [Concomitant]
     Active Substance: DEXAMETHASONE
     Indication: Chemotherapy side effect prophylaxis
     Route: 030
     Dates: start: 20250424, end: 20250425
  8. FILGRASTIM [Concomitant]
     Active Substance: FILGRASTIM
     Indication: Neutropenia
     Route: 058
     Dates: start: 20250429, end: 20250429
  9. FLUOROURACIL [Concomitant]
     Active Substance: FLUOROURACIL
     Indication: Laryngeal cancer
     Route: 041
     Dates: start: 20250425, end: 20250426
  10. OMAL [Concomitant]
     Indication: Chemotherapy side effect prophylaxis
     Route: 041
     Dates: start: 20250425, end: 20250425
  11. ULTOP [OMEPRAZOLE] [Concomitant]
     Indication: Prophylaxis against gastrointestinal ulcer
     Route: 048
     Dates: start: 20250424, end: 20250505
  12. CISPLATIN [Concomitant]
     Active Substance: CISPLATIN
     Indication: Laryngeal cancer
     Route: 041
     Dates: start: 20250425, end: 20250425
  13. DOCETAXEL [Concomitant]
     Active Substance: DOCETAXEL
     Indication: Laryngeal cancer
     Route: 065
     Dates: start: 20250425, end: 20250425
  14. ONDANSETRON [Concomitant]
     Active Substance: ONDANSETRON
     Indication: Vomiting
     Route: 030
     Dates: start: 20250425, end: 20250429

REACTIONS (1)
  - Toxic skin eruption [Recovered/Resolved]

NARRATIVE: CASE EVENT DATE: 20250430
